FAERS Safety Report 5553763-6 (Version None)
Quarter: 2007Q4

REPORT INFORMATION
  Report Type: 
  Country: None (occurrence: None)
  Receive Date: 20071213
  Receipt Date: 20070716
  Transmission Date: 20080405
  Serious: No
  Sender: FDA-Public Use
  Company Number: US-AMGEN-KDL230617

PATIENT
  Sex: Female

DRUGS (1)
  1. ENBREL [Suspect]
     Indication: PSORIATIC ARTHROPATHY
     Route: 058
     Dates: start: 20070528

REACTIONS (4)
  - HAEMORRHAGE SUBCUTANEOUS [None]
  - IRRITABILITY [None]
  - MOOD SWINGS [None]
  - PSORIATIC ARTHROPATHY [None]
